FAERS Safety Report 11311031 (Version 1)
Quarter: 2015Q3

REPORT INFORMATION
  Report Type: Spontaneous
  Country: FR (occurrence: FR)
  Receive Date: 20150727
  Receipt Date: 20150727
  Transmission Date: 20151125
  Serious: Yes (Hospitalization)
  Sender: FDA-Public Use
  Company Number: FR-ROCHE-1612330

PATIENT
  Age: 58 Year
  Sex: Male

DRUGS (5)
  1. CORTANCYL [Concomitant]
     Active Substance: PREDNISONE
     Route: 065
  2. CELLCEPT [Suspect]
     Active Substance: MYCOPHENOLATE MOFETIL\MYCOPHENOLATE MOFETIL HYDROCHLORIDE
     Indication: RENAL TRANSPLANT
     Route: 048
     Dates: start: 201311
  3. AMLODIPINE [Concomitant]
     Active Substance: AMLODIPINE BESYLATE
     Route: 065
  4. SECTRAL [Concomitant]
     Active Substance: ACEBUTOLOL HYDROCHLORIDE
     Route: 065
  5. PROGRAF [Suspect]
     Active Substance: TACROLIMUS\TACROLIMUS ANHYDROUS
     Indication: RENAL TRANSPLANT
     Route: 048
     Dates: start: 201311

REACTIONS (2)
  - Cholestasis [Not Recovered/Not Resolved]
  - Nodular regenerative hyperplasia [Not Recovered/Not Resolved]

NARRATIVE: CASE EVENT DATE: 201402
